FAERS Safety Report 5054849-5 (Version None)
Quarter: 2006Q3

REPORT INFORMATION
  Report Type: 
  Country: None (occurrence: None)
  Receive Date: 20060717
  Receipt Date: 20060703
  Transmission Date: 20061208
  Serious: Yes (Death, Hospitalization)
  Sender: FDA-Public Use
  Company Number: 2006082942

PATIENT
  Age: 44 Year
  Sex: Female

DRUGS (4)
  1. GEODON [Suspect]
     Indication: DRUG USE FOR UNKNOWN INDICATION
  2. LEXAPRO [Suspect]
     Indication: DRUG USE FOR UNKNOWN INDICATION
  3. COGENTIN [Suspect]
     Indication: DRUG USE FOR UNKNOWN INDICATION
  4. HALDOL DECANOATE (HALOPERIDOL DECANOATE) [Suspect]
     Indication: DRUG USE FOR UNKNOWN INDICATION

REACTIONS (1)
  - LOSS OF CONSCIOUSNESS [None]
